FAERS Safety Report 8397843-9 (Version None)
Quarter: 2012Q2

REPORT INFORMATION
  Report Type: 
  Country: None (occurrence: None)
  Receive Date: 20120524
  Receipt Date: 20120516
  Transmission Date: 20120825
  Serious: Yes (Death)
  Sender: FDA-Public Use
  Company Number: 2012SP026935

PATIENT
  Age: 11 Year
  Sex: Male

DRUGS (7)
  1. TEMOZOLOMIDE [Suspect]
     Indication: BRAIN NEOPLASM
  2. ETOPOSIDE [Suspect]
     Indication: BRAIN NEOPLASM
  3. PROCARBAZINE HYDROCHLORIDE [Suspect]
     Indication: BRAIN NEOPLASM
  4. CYCLOPHOSPHAMIDE [Suspect]
     Indication: BRAIN NEOPLASM
  5. CISPLATIN [Suspect]
     Indication: BRAIN NEOPLASM
  6. CARBOPLATIN [Suspect]
     Indication: BRAIN NEOPLASM
  7. VINCRISTINE [Suspect]
     Indication: BRAIN NEOPLASM

REACTIONS (2)
  - MYELODYSPLASTIC SYNDROME [None]
  - TREATMENT RELATED SECONDARY MALIGNANCY [None]
